FAERS Safety Report 6794943-1 (Version None)
Quarter: 2010Q2

REPORT INFORMATION
  Report Type: 
  Country: None (occurrence: None)
  Receive Date: 20100624
  Receipt Date: 20100624
  Transmission Date: 20101027
  Serious: No
  Sender: FDA-Public Use
  Company Number: None

PATIENT
  Sex: Female
  Weight: 57.15 kg

DRUGS (8)
  1. CISPLATIN [Suspect]
     Dosage: 78 MG
     Dates: end: 20100608
  2. TAXOL [Suspect]
     Dosage: 270 MG
     Dates: end: 20100608
  3. ALLEGRA [Concomitant]
  4. COMPAZINE [Concomitant]
  5. OXYCODONE HCL [Concomitant]
  6. VICODIN [Concomitant]
  7. ZOFRAN [Concomitant]
  8. LOPERAMIDE [Concomitant]

REACTIONS (1)
  - NEUTROPHIL COUNT DECREASED [None]
